FAERS Safety Report 11726750 (Version 4)
Quarter: 2017Q1

REPORT INFORMATION
  Report Type: Report from Study
  Country: DE (occurrence: DE)
  Receive Date: 20151112
  Receipt Date: 20170214
  Transmission Date: 20170428
  Serious: Yes (Hospitalization)
  Sender: FDA-Public Use
  Company Number: PHHO2015DE014592

PATIENT
  Age: 65 Year
  Sex: Female
  Weight: 78 kg

DRUGS (12)
  1. TACROLIMUS. [Suspect]
     Active Substance: TACROLIMUS
     Indication: RENAL TRANSPLANT
     Dosage: 4.5 MG, BID
     Route: 048
     Dates: start: 20150820, end: 20150909
  2. PREDNISON [Concomitant]
     Active Substance: PREDNISONE
     Dosage: 7.5 UNK, UNK
     Route: 048
     Dates: start: 20151229, end: 20160101
  3. SANDIMMUN [Concomitant]
     Active Substance: CYCLOSPORINE
     Dosage: 75-0-50 MG
     Route: 065
     Dates: start: 20151204, end: 20151218
  4. PROGRAF [Suspect]
     Active Substance: TACROLIMUS\TACROLIMUS ANHYDROUS
     Dosage: 3.5 MG, BID
     Route: 048
     Dates: end: 20151124
  5. PREDNISON [Concomitant]
     Active Substance: PREDNISONE
     Indication: RENAL TRANSPLANT
     Dosage: 15 MG, UNK
     Route: 048
     Dates: start: 20150820, end: 20150909
  6. CERTICAN [Suspect]
     Active Substance: EVEROLIMUS
     Indication: RENAL TRANSPLANT
     Dosage: 3 MG, BID
     Route: 048
     Dates: start: 20150820, end: 20150909
  7. PREDNISON [Concomitant]
     Active Substance: PREDNISONE
     Dosage: 10 MG, UNK
     Route: 048
     Dates: start: 20151022, end: 20151127
  8. SANDIMMUN [Concomitant]
     Active Substance: CYCLOSPORINE
     Indication: PRODUCT USED FOR UNKNOWN INDICATION
     Dosage: 75 MG, BID
     Route: 065
     Dates: start: 20151125, end: 20151127
  9. CERTICAN [Suspect]
     Active Substance: EVEROLIMUS
     Dosage: 4 MG, BID
     Route: 048
     Dates: start: 20150918
  10. TACROLIMUS. [Suspect]
     Active Substance: TACROLIMUS
     Dosage: 3.5 MG, BID
     Route: 048
     Dates: end: 20151124
  11. PROGRAF [Suspect]
     Active Substance: TACROLIMUS\TACROLIMUS ANHYDROUS
     Indication: RENAL TRANSPLANT
     Dosage: 4.5 MG, BID
     Route: 048
     Dates: start: 20150820, end: 20150909
  12. SANDIMMUN [Concomitant]
     Active Substance: CYCLOSPORINE
     Dosage: 100 MG, BID
     Route: 065
     Dates: start: 20151229, end: 20160106

REACTIONS (14)
  - Cardiac failure [Recovered/Resolved]
  - Erysipelas [Recovered/Resolved]
  - Renal impairment [Recovered/Resolved]
  - Cardiac failure [Recovered/Resolved]
  - Mitral valve incompetence [Recovered/Resolved]
  - Renal impairment [Recovered/Resolved]
  - Renal impairment [Recovered/Resolved]
  - Renal impairment [Recovered/Resolved]
  - Renal transplant failure [Unknown]
  - Renal impairment [Recovered/Resolved]
  - Intracranial aneurysm [Not Recovered/Not Resolved]
  - Diarrhoea [Recovered/Resolved]
  - Renal transplant failure [Recovered/Resolved]
  - Kidney transplant rejection [Recovered/Resolved]

NARRATIVE: CASE EVENT DATE: 20150909
